FAERS Safety Report 20845779 (Version 3)
Quarter: 2022Q4

REPORT INFORMATION
  Report Type: Spontaneous
  Country: US (occurrence: US)
  Receive Date: 20220518
  Receipt Date: 20221117
  Transmission Date: 20230113
  Serious: No
  Sender: FDA-Public Use
  Company Number: US-PFIZER INC-202200672492

PATIENT
  Age: 52 Year
  Sex: Female

DRUGS (3)
  1. IBRANCE [Suspect]
     Active Substance: PALBOCICLIB
     Indication: Breast cancer female
     Dosage: 125 MG, CYCLIC (1 TABLET EVERYDAY FOR 21 DAYS)
     Route: 048
     Dates: start: 20200502, end: 202205
  2. CALCIUM\CHOLECALCIFEROL [Concomitant]
     Active Substance: CALCIUM\CHOLECALCIFEROL
     Dosage: UNK (CALCIUM/D3 TAB 500-400)
  3. IBUPROFEN [Concomitant]
     Active Substance: IBUPROFEN
     Dosage: UNK

REACTIONS (4)
  - General physical health deterioration [Not Recovered/Not Resolved]
  - Fatigue [Unknown]
  - Stomatitis [Unknown]
  - Nausea [Unknown]
